FAERS Safety Report 6492607-5 (Version None)
Quarter: 2009Q4

REPORT INFORMATION
  Report Type: 
  Country: None (occurrence: None)
  Receive Date: 20091211
  Receipt Date: 20091211
  Transmission Date: 20100525
  Serious: Yes (Hospitalization, Other)
  Sender: FDA-Public Use
  Company Number: None

PATIENT
  Sex: Female
  Weight: 68.0396 kg

DRUGS (1)
  1. BONIVA [Suspect]
     Indication: PROPHYLAXIS
     Dosage: 1 PER MO.
     Dates: start: 20010101, end: 20090101

REACTIONS (2)
  - FEMUR FRACTURE [None]
  - RIB FRACTURE [None]
